FAERS Safety Report 10609834 (Version 1)
Quarter: 2014Q4

REPORT INFORMATION
  Report Type: Spontaneous
  Country: US (occurrence: US)
  Receive Date: 20141126
  Receipt Date: 20141126
  Transmission Date: 20150529
  Serious: Yes (Hospitalization, Other)
  Sender: FDA-Public Use
  Company Number: US-TEVA-524930USA

PATIENT
  Sex: Male

DRUGS (1)
  1. ACTIQ [Suspect]
     Active Substance: FENTANYL CITRATE
     Indication: NECK PAIN
     Route: 048

REACTIONS (7)
  - Dental prosthesis user [Unknown]
  - Tooth loss [Not Recovered/Not Resolved]
  - Accidental overdose [Recovered/Resolved]
  - Apparent death [Recovered/Resolved]
  - Mechanical ventilation [Recovered/Resolved]
  - Dental implantation [Unknown]
  - Intentional product use issue [Unknown]
